FAERS Safety Report 6903250-5 (Version None)
Quarter: 2010Q3

REPORT INFORMATION
  Report Type: 
  Country: None (occurrence: None)
  Receive Date: 20100803
  Receipt Date: 20080904
  Transmission Date: 20110219
  Serious: No
  Sender: FDA-Public Use
  Company Number: US-PFIZER INC-2008075642

PATIENT
  Sex: Female
  Weight: 90.7 kg

DRUGS (12)
  1. LYRICA [Suspect]
  2. LUNESTA [Suspect]
     Indication: INSOMNIA
     Route: 048
     Dates: start: 20060109, end: 20080101
  3. EFFEXOR XR [Concomitant]
  4. WELLBUTRIN SR [Concomitant]
  5. BUSPAR [Concomitant]
  6. ATIVAN [Concomitant]
  7. CYMBALTA [Concomitant]
  8. FENTANYL CITRATE [Concomitant]
  9. LORTAB [Concomitant]
  10. IBUPROFEN [Concomitant]
  11. TIZANIDINE HCL [Concomitant]
  12. ROZEREM [Concomitant]

REACTIONS (1)
  - SOMNAMBULISM [None]
